FAERS Safety Report 7201287-2 (Version None)
Quarter: 2010Q4

REPORT INFORMATION
  Report Type: 
  Country: None (occurrence: None)
  Receive Date: 20101227
  Receipt Date: 20101227
  Transmission Date: 20110411
  Serious: Yes (Hospitalization, Disabling, Other)
  Sender: FDA-Public Use
  Company Number: None

PATIENT
  Age: 30 Year
  Sex: Female
  Weight: 56.6996 kg

DRUGS (2)
  1. LORAZEPAM [Suspect]
     Indication: ANXIETY
     Dosage: .5 MG 2/DAY PO
     Route: 048
     Dates: start: 20100710, end: 20100830
  2. ATIVAN [Concomitant]

REACTIONS (10)
  - ABDOMINAL PAIN [None]
  - BALANCE DISORDER [None]
  - CONVULSION [None]
  - DIZZINESS [None]
  - GASTROINTESTINAL DISORDER [None]
  - MIGRAINE [None]
  - MOTOR DYSFUNCTION [None]
  - MUSCLE SPASMS [None]
  - RENAL IMPAIRMENT [None]
  - TREMOR [None]
